FAERS Safety Report 13661650 (Version 3)
Quarter: 2017Q4

REPORT INFORMATION
  Report Type: Report from Study
  Country: US (occurrence: US)
  Receive Date: 20170616
  Receipt Date: 20171208
  Transmission Date: 20180320
  Serious: Yes (Hospitalization, Other)
  Sender: FDA-Public Use
  Company Number: US-NAPPMUNDI-USA-2017-0139466

PATIENT
  Age: 65 Year
  Sex: Male

DRUGS (3)
  1. OXYCODONE HYDROCHLORIDE. [Suspect]
     Active Substance: OXYCODONE HYDROCHLORIDE
     Dosage: 80 MG, TID
     Route: 048
  2. OXYCODONE HYDROCHLORIDE. [Suspect]
     Active Substance: OXYCODONE HYDROCHLORIDE
     Indication: PERINEURIAL CYST
     Dosage: 80 MG, Q12H
     Route: 048
     Dates: start: 2003
  3. OXYCODONE HYDROCHLORIDE. [Suspect]
     Active Substance: OXYCODONE HYDROCHLORIDE
     Indication: PAIN
     Dosage: 80 MG, TID PRN
     Route: 048

REACTIONS (9)
  - Lung neoplasm malignant [Unknown]
  - Pulmonary mass [Not Recovered/Not Resolved]
  - Pleural effusion [Unknown]
  - Shoulder operation [Unknown]
  - Hip fracture [Unknown]
  - Upper limb fracture [Unknown]
  - Dyspnoea [Unknown]
  - Fall [Unknown]
  - Off label use [Unknown]

NARRATIVE: CASE EVENT DATE: 201701
